FAERS Safety Report 9522499 (Version 2)
Quarter: 2014Q1

REPORT INFORMATION
  Report Type: Spontaneous
  Country: US (occurrence: US)
  Receive Date: 20130913
  Receipt Date: 20140116
  Transmission Date: 20141002
  Serious: Yes (Death, Hospitalization)
  Sender: FDA-Public Use
  Company Number: US-B.I. PHARMACEUTICALS,INC./RIDGEFIELD-2013-BI-28006BP

PATIENT
  Age: 66 Year
  Sex: Male
  Weight: 113.4 kg

DRUGS (6)
  1. PRADAXA [Suspect]
     Indication: ATRIAL FIBRILLATION
     Dates: start: 20110920, end: 20111122
  2. PRADAXA [Suspect]
     Dates: start: 20111113
  3. CARDIZEM CD [Concomitant]
  4. LOTREL [Concomitant]
  5. ZIAC [Concomitant]
  6. OXYCODONE [Concomitant]

REACTIONS (3)
  - Gastric ulcer haemorrhage [Fatal]
  - Procedural haemorrhage [Unknown]
  - Colectomy [Unknown]
